FAERS Safety Report 4500119-0 (Version None)
Quarter: 2004Q4

REPORT INFORMATION
  Report Type: 
  Country: None (occurrence: None)
  Receive Date: 20041112
  Receipt Date: 20041103
  Transmission Date: 20050328
  Serious: Yes (Hospitalization)
  Sender: FDA-Public Use
  Company Number: PT-GLAXOSMITHKLINE-B0351185A

PATIENT
  Age: 36 Year
  Sex: Female

DRUGS (3)
  1. CLAMOXYL [Suspect]
     Indication: TOOTH DISORDER
     Dosage: 500MG UNKNOWN
     Route: 048
     Dates: start: 19980901
  2. DIAZEPAM [Concomitant]
     Indication: DEPRESSION
     Route: 048
  3. CLOMIPRAMINE HCL [Concomitant]
     Indication: DEPRESSION
     Route: 048

REACTIONS (2)
  - POLYARTHRITIS [None]
  - URTICARIA GENERALISED [None]
